FAERS Safety Report 9097794 (Version 2)
Quarter: 2013Q1

REPORT INFORMATION
  Report Type: Spontaneous
  Country: US (occurrence: US)
  Receive Date: 20130212
  Receipt Date: 20130226
  Transmission Date: 20140127
  Serious: Yes (Hospitalization, Other)
  Sender: FDA-Public Use
  Company Number: US-BRISTOL-MYERS SQUIBB COMPANY-17366113

PATIENT
  Age: 63 Year
  Sex: Male
  Weight: 124 kg

DRUGS (8)
  1. METFORMIN HCL [Suspect]
     Indication: DIABETES MELLITUS
     Dosage: 2000MG: 16MAR10-22JUN10?2000MG: 22JUN10-15OCT10?115DAYS
     Route: 048
     Dates: start: 20100316, end: 20101015
  2. METFORMIN HCL [Suspect]
     Indication: TYPE 2 DIABETES MELLITUS
     Dosage: 2000MG: 16MAR10-22JUN10?2000MG: 22JUN10-15OCT10?115DAYS
     Route: 048
     Dates: start: 20100316, end: 20101015
  3. ZOCOR [Concomitant]
     Route: 048
     Dates: start: 20100316
  4. ADVAIR [Concomitant]
     Dosage: 1DF: 250/50 MCG
     Route: 055
     Dates: start: 20100316
  5. LISINOPRIL [Concomitant]
     Route: 048
     Dates: start: 20100316
  6. ASPIRIN [Concomitant]
     Route: 048
     Dates: start: 20090707
  7. IBUPROFEN [Concomitant]
     Dates: start: 20100709
  8. ECOTRIN [Concomitant]

REACTIONS (3)
  - Non-cardiac chest pain [Recovered/Resolved]
  - Hepatic steatosis [Unknown]
  - Blood creatinine increased [Recovered/Resolved]
